FAERS Safety Report 21661376 (Version 1)
Quarter: 2022Q4

REPORT INFORMATION
  Report Type: Spontaneous
  Country: US (occurrence: US)
  Receive Date: 20221130
  Receipt Date: 20221130
  Transmission Date: 20230112
  Serious: No
  Sender: FDA-Public Use
  Company Number: US-TAKEDA-2022TUS090946

PATIENT
  Sex: Female
  Weight: 66 kg

DRUGS (1)
  1. ENTYVIO [Suspect]
     Active Substance: VEDOLIZUMAB
     Indication: Colitis ulcerative
     Dosage: UNK
     Route: 042

REACTIONS (6)
  - Limb discomfort [Unknown]
  - Hair disorder [Unknown]
  - Malaise [Unknown]
  - Weight increased [Unknown]
  - Dyspnoea [Unknown]
  - Fatigue [Unknown]
